FAERS Safety Report 13903334 (Version 1)
Quarter: 2017Q3

REPORT INFORMATION
  Report Type: Spontaneous
  Country: FR (occurrence: FR)
  Receive Date: 20170824
  Receipt Date: 20170824
  Transmission Date: 20171127
  Serious: Yes (Life-Threatening, Other)
  Sender: FDA-Public Use
  Company Number: FR-MYLANLABS-2017M1051008

PATIENT

DRUGS (4)
  1. THERALENE [Suspect]
     Active Substance: TRIMEPRAZINE
     Indication: PRODUCT USED FOR UNKNOWN INDICATION
     Dosage: 2400 MG, ONCE
     Route: 048
     Dates: start: 20170612, end: 20170612
  2. LORMETAZEPAM [Suspect]
     Active Substance: LORMETAZEPAM
     Indication: PRODUCT USED FOR UNKNOWN INDICATION
     Dosage: 28 DF, ONCE
     Route: 048
     Dates: start: 20170612, end: 20170612
  3. ISOPTINE L.P. 240 MG [Suspect]
     Active Substance: VERAPAMIL HYDROCHLORIDE
     Indication: PRODUCT USED FOR UNKNOWN INDICATION
     Dosage: 90 DF, ONCE
     Route: 048
     Dates: start: 20170612, end: 20170612
  4. LYSANXIA [Suspect]
     Active Substance: PRAZEPAM
     Indication: PRODUCT USED FOR UNKNOWN INDICATION
     Dosage: 80 DF, ONCE
     Route: 048
     Dates: start: 20170612, end: 20170612

REACTIONS (4)
  - Coma [Recovered/Resolved]
  - Lactic acidosis [Recovered/Resolved]
  - Cardiogenic shock [Recovered/Resolved]
  - Cardio-respiratory arrest [Recovered/Resolved]

NARRATIVE: CASE EVENT DATE: 20170612
